FAERS Safety Report 6537936-1 (Version None)
Quarter: 2010Q1

REPORT INFORMATION
  Report Type: 
  Country: None (occurrence: None)
  Receive Date: 20100114
  Receipt Date: 20100107
  Transmission Date: 20100710
  Serious: Yes (Hospitalization)
  Sender: FDA-Public Use
  Company Number: FR-KINGPHARMUSA00001-K201000015

PATIENT
  Age: 82 Year
  Sex: Female

DRUGS (10)
  1. ALTACE [Suspect]
     Dosage: 2.5 MG, QD
     Route: 048
     Dates: start: 20090519
  2. DEPAMIDE [Suspect]
     Dosage: 300 MG, QD
     Route: 048
     Dates: start: 20090519, end: 20090604
  3. PAROXETINE HCL [Suspect]
     Dosage: 20 MG, QD
     Route: 048
     Dates: start: 20090519
  4. ZYPREXA [Suspect]
     Dosage: 7.5 MG, QD
     Route: 048
     Dates: start: 20090519, end: 20090604
  5. ZYPREXA [Suspect]
     Dosage: 5 MG, QD
     Route: 048
     Dates: start: 20090604
  6. LORMETAZEPAM [Suspect]
     Dosage: 2 MG, QD
     Route: 048
     Dates: start: 20090519
  7. ZANIDIP [Suspect]
     Dosage: 10 MG, QD
     Route: 048
  8. ZALDIAR [Suspect]
     Dosage: 37.5 MG, QD
     Route: 048
  9. RABEPRAZOLE SODIUM [Concomitant]
  10. FELDENE [Concomitant]

REACTIONS (2)
  - FALL [None]
  - PERIORBITAL HAEMATOMA [None]
